FAERS Safety Report 4637024-5 (Version None)
Quarter: 2005Q2

REPORT INFORMATION
  Report Type: 
  Country: None (occurrence: None)
  Receive Date: 20050414
  Receipt Date: 20040505
  Transmission Date: 20051028
  Serious: Yes (Other)
  Sender: FDA-Public Use
  Company Number: 2005BI007259

PATIENT
  Sex: Female

DRUGS (2)
  1. AVONEX [Suspect]
     Indication: MULTIPLE SCLEROSIS
     Dosage: 30 UG;QW;IM
     Route: 030
     Dates: start: 20031104, end: 20040101
  2. AVONEX [Suspect]
     Indication: MULTIPLE SCLEROSIS
     Dosage: 30 UG;QW;IM
     Route: 030
     Dates: start: 20040301, end: 20040601

REACTIONS (8)
  - FEAR [None]
  - FEELING ABNORMAL [None]
  - HYSTERECTOMY [None]
  - INFLUENZA [None]
  - INSOMNIA [None]
  - MENOPAUSAL SYMPTOMS [None]
  - STRESS [None]
  - WHITE BLOOD CELL COUNT DECREASED [None]
